FAERS Safety Report 15345098 (Version 1)
Quarter: 2018Q3

REPORT INFORMATION
  Report Type: Spontaneous
  Country: FR (occurrence: FR)
  Receive Date: 20180903
  Receipt Date: 20180903
  Transmission Date: 20181010
  Serious: Yes (Hospitalization)
  Sender: FDA-Public Use
  Company Number: PHHY2018FR084465

PATIENT
  Age: 78 Year
  Sex: Female
  Weight: 87.9 kg

DRUGS (3)
  1. AMOXICILLIN. [Suspect]
     Active Substance: AMOXICILLIN
     Indication: ERYSIPELAS
     Dosage: 2 G, QD
     Route: 048
     Dates: start: 20180710, end: 20180717
  2. FURADANTINE [Suspect]
     Active Substance: NITROFURANTOIN
     Indication: CYSTITIS
     Dosage: 300 MG, QD
     Route: 048
     Dates: start: 20180705, end: 20180712
  3. LOGIFLOX [Suspect]
     Active Substance: LOMEFLOXACIN
     Indication: CYSTITIS
     Route: 048

REACTIONS (1)
  - Linear IgA disease [Recovering/Resolving]

NARRATIVE: CASE EVENT DATE: 20180715
